FAERS Safety Report 16584369 (Version 3)
Quarter: 2019Q3

REPORT INFORMATION
  Report Type: Report from Study
  Country: GR (occurrence: GR)
  Receive Date: 20190717
  Receipt Date: 20190829
  Transmission Date: 20191004
  Serious: Yes (Death, Hospitalization, Other)
  Sender: FDA-Public Use
  Company Number: GR-AMGEN-GRCSL2019112461

PATIENT
  Age: 79 Year
  Sex: Female

DRUGS (1)
  1. KYPROLIS [Suspect]
     Active Substance: CARFILZOMIB
     Indication: PLASMA CELL MYELOMA
     Dosage: 112 MILLIGRAM
     Route: 065
     Dates: start: 201906

REACTIONS (2)
  - Pleural effusion [Unknown]
  - Death [Fatal]

NARRATIVE: CASE EVENT DATE: 2019
